FAERS Safety Report 21720577 (Version 1)
Quarter: 2022Q4

REPORT INFORMATION
  Report Type: Spontaneous
  Country: CH (occurrence: CH)
  Receive Date: 20221213
  Receipt Date: 20221213
  Transmission Date: 20230113
  Serious: Yes (Other)
  Sender: FDA-Public Use
  Company Number: None

PATIENT
  Age: 0 Day
  Sex: Female
  Weight: 2.35 kg

DRUGS (7)
  1. MIDAZOLAM [Suspect]
     Active Substance: MIDAZOLAM
     Dosage: 15 MG, QD
     Dates: start: 202105, end: 2022
  2. MIDAZOLAM [Suspect]
     Active Substance: MIDAZOLAM
     Dosage: 22.5 MG, QD
     Dates: start: 2022, end: 202203
  3. MIDAZOLAM [Suspect]
     Active Substance: MIDAZOLAM
     Dosage: 30 MG, QD
     Dates: start: 202203, end: 202205
  4. MIDAZOLAM [Suspect]
     Active Substance: MIDAZOLAM
     Dosage: 45 MG, QD
     Dates: start: 202205, end: 2022
  5. OXAZEPAM [Suspect]
     Active Substance: OXAZEPAM
     Dosage: 90 MG, QD
     Dates: start: 2022
  6. ZOLPIDEM TARTRATE [Suspect]
     Active Substance: ZOLPIDEM TARTRATE
     Dosage: 12 MG, QD
     Dates: start: 2022, end: 2022
  7. ZOLPIDEM TARTRATE [Suspect]
     Active Substance: ZOLPIDEM TARTRATE
     Dosage: 15 MG, HS
     Dates: start: 2022

REACTIONS (3)
  - Foetal growth restriction [Recovering/Resolving]
  - Neonatal respiratory distress [Recovered/Resolved]
  - Foetal exposure during pregnancy [Unknown]

NARRATIVE: CASE EVENT DATE: 20220101
